FAERS Safety Report 15951247 (Version 1)
Quarter: 2019Q1

REPORT INFORMATION
  Report Type: Report from Study
  Country: US (occurrence: US)
  Receive Date: 20190211
  Receipt Date: 20190211
  Transmission Date: 20190417
  Serious: Yes (Other)
  Sender: FDA-Public Use
  Company Number: US-ASTRAZENECA-2019SE04596

PATIENT
  Age: 27905 Day
  Sex: Female
  Weight: 90.3 kg

DRUGS (1)
  1. BYDUREON BCISE [Suspect]
     Active Substance: EXENATIDE
     Indication: TYPE 2 DIABETES MELLITUS
     Route: 058
     Dates: start: 20181205

REACTIONS (7)
  - Contusion [Unknown]
  - Decreased appetite [Not Recovered/Not Resolved]
  - Product closure removal difficult [Unknown]
  - Device malfunction [Unknown]
  - Haemorrhage [Recovered/Resolved]
  - Dysgeusia [Not Recovered/Not Resolved]
  - Device malfunction [Unknown]

NARRATIVE: CASE EVENT DATE: 20181225
